FAERS Safety Report 8790007 (Version 1)
Quarter: 2012Q4

REPORT INFORMATION
  Report Type: Report from Study
  Country: JP (occurrence: JP)
  Receive Date: 20120917
  Receipt Date: 20120917
  Transmission Date: 20130627
  Serious: Yes (Other)
  Sender: FDA-Public Use
  Company Number: JP-VERTEX PHARMACEUTICAL INC.-AE-2012-011112

PATIENT
  Age: 46 Year
  Sex: Male

DRUGS (20)
  1. MIYA-BM [Concomitant]
     Route: 048
  2. PROHEPARUM [Concomitant]
     Route: 048
  3. VITAMEDIN [Concomitant]
     Route: 048
  4. VX-950 [Suspect]
     Indication: HEPATITIS C
     Dosage: 1500 mg, qd
     Route: 048
     Dates: start: 20120523, end: 20120525
  5. VX-950 [Suspect]
     Dosage: 1500 mg, qd
     Route: 048
     Dates: start: 20120528, end: 20120702
  6. VX-950 [Suspect]
     Dosage: UNK
  7. PEGINTERFERON ALFA-2B [Suspect]
     Indication: HEPATITIS C
     Dosage: 100 ?g/kg, UNK
     Route: 058
     Dates: start: 20120523, end: 20120627
  8. RIBAVIRIN [Suspect]
     Indication: HEPATITIS C
     Dosage: 800 mg, qd
     Route: 048
     Dates: start: 20120523, end: 20120612
  9. RIBAVIRIN [Suspect]
     Dosage: 600 mg, qd
     Route: 048
     Dates: start: 20120613, end: 20120702
  10. ALESION [Suspect]
     Indication: PROPHYLAXIS
     Dosage: 20 mg, qd
     Route: 048
     Dates: start: 20120523
  11. ZYLORIC [Suspect]
     Dosage: 1 DF, qd
     Route: 048
     Dates: start: 20120613, end: 20120702
  12. PREDONINE [Suspect]
     Dosage: 20 mg, UNK
     Route: 048
     Dates: start: 20120613
  13. PREDONINE [Suspect]
     Dosage: 15 mg, qd
     Route: 048
     Dates: start: 20120618
  14. PREDONINE [Suspect]
     Dosage: 10 mg, qd
     Route: 048
     Dates: start: 20120620
  15. PREDONINE [Suspect]
     Dosage: 5 mg, qd
     Route: 048
     Dates: start: 20120627, end: 20120704
  16. FOLIAMIN [Concomitant]
     Route: 048
  17. VEGETAMIN B [Concomitant]
     Route: 048
  18. FLUNITRAZEPAM [Concomitant]
     Route: 048
  19. VOLTAREN [Concomitant]
     Route: 048
  20. SELBEX [Concomitant]
     Route: 048

REACTIONS (2)
  - Pancreatitis acute [Recovered/Resolved]
  - Rash erythematous [Recovered/Resolved]
